FAERS Safety Report 17009495 (Version 1)
Quarter: 2019Q4

REPORT INFORMATION
  Report Type: Spontaneous
  Country: US (occurrence: US)
  Receive Date: 20190928
  Receipt Date: 20190928
  Transmission Date: 20200122
  Serious: Yes (Death, Hospitalization)
  Sender: FDA-Public Use
  Company Number: None

PATIENT
  Age: 73 Year
  Sex: Female
  Weight: 57 kg

DRUGS (5)
  1. TAXOTERE [Concomitant]
     Active Substance: DOCETAXEL
  2. NEULASTA [Suspect]
     Active Substance: PEGFILGRASTIM
     Dates: end: 20190830
  3. PERJETA [Concomitant]
     Active Substance: PERTUZUMAB
  4. HERCEPTIN [Concomitant]
     Active Substance: TRASTUZUMAB
  5. CARBOPLATIN. [Concomitant]
     Active Substance: CARBOPLATIN

REACTIONS (7)
  - Hypotension [None]
  - Staphylococcal sepsis [None]
  - Mental status changes [None]
  - Neutropenic sepsis [None]
  - Multiple organ dysfunction syndrome [None]
  - Respiratory failure [None]
  - Tachycardia [None]

NARRATIVE: CASE EVENT DATE: 20190906
